FAERS Safety Report 8150382-2 (Version None)
Quarter: 2012Q1

REPORT INFORMATION
  Report Type: 
  Country: None (occurrence: None)
  Receive Date: 20120220
  Receipt Date: 20120209
  Transmission Date: 20120608
  Serious: Yes (Death, Hospitalization, Other)
  Sender: FDA-Public Use
  Company Number: DK-PFIZER INC-2011185566

PATIENT
  Age: 86 Year
  Sex: Male

DRUGS (13)
  1. LOSARTAN [Concomitant]
     Indication: HYPERTENSION
     Dosage: 12.5 MG, 1X/DAY
  2. PREDNISOLONE [Concomitant]
     Indication: RHEUMATOID ARTHRITIS
  3. BRICANYL [Concomitant]
  4. MORPHINE SULFATE [Suspect]
     Dosage: 60 MG, 2X/DAY
     Route: 048
     Dates: start: 20110623, end: 20110625
  5. FUROSEMIDE [Concomitant]
     Indication: HYPERTENSION
     Dosage: 40 MG, 1X/DAY
  6. FERRO DURETTER [Concomitant]
     Dosage: 100 MG, 1X/DAY
  7. OXYCODONE HCL [Suspect]
     Dosage: 5 MG, AS NEEDED
     Dates: end: 20110625
  8. CANDESARTAN CILEXETIL [Concomitant]
     Indication: HYPERTENSION
     Dosage: 2 MG, 1X/DAY
  9. NO SUBJECT DRUG [Suspect]
     Dosage: NO DOSE GIVEN
  10. SPIRIVA [Concomitant]
     Dosage: 18 UG, 1X/DAY
  11. PARACETAMOL [Concomitant]
  12. TRAMADOL HCL [Suspect]
     Dosage: 100 MG 3 TO 4 TIMES DAILY
     Dates: end: 20110625
  13. SPIRONOLACTONE [Concomitant]
     Dosage: 25 MG, 1X/DAY

REACTIONS (2)
  - PNEUMONIA ASPIRATION [None]
  - OVERDOSE [None]
